FAERS Safety Report 8947918 (Version 1)
Quarter: 2012Q4

REPORT INFORMATION
  Report Type: Spontaneous
  Country: US (occurrence: None)
  Receive Date: 20121203
  Receipt Date: 20121203
  Transmission Date: 20130627
  Serious: No
  Sender: FDA-Public Use
  Company Number: None

PATIENT
  Age: 22 Month
  Sex: Male

DRUGS (1)
  1. AMOXICILLIN [Suspect]
     Dosage: 6ML  TID  po
     Route: 048
     Dates: start: 20120206, end: 20120208

REACTIONS (5)
  - Rash [None]
  - Urticaria [None]
  - Choking [None]
  - Vomiting [None]
  - Epistaxis [None]
